FAERS Safety Report 6633462-X (Version None)
Quarter: 2010Q1

REPORT INFORMATION
  Report Type: 
  Country: None (occurrence: None)
  Receive Date: 20100312
  Receipt Date: 20090501
  Transmission Date: 20100710
  Serious: No
  Sender: FDA-Public Use
  Company Number: US-ABBOTT-09P-163-0570096-00

PATIENT
  Sex: Female

DRUGS (1)
  1. ERYTHROMYCIN BASE [Suspect]
     Indication: IMPETIGO
     Dosage: UNKNOWN DOSE
     Route: 048
     Dates: start: 19750101, end: 19750101

REACTIONS (5)
  - DISORIENTATION [None]
  - ONYCHALGIA [None]
  - PARANOIA [None]
  - TOOTHACHE [None]
  - UNEVALUABLE EVENT [None]
